FAERS Safety Report 8217235-2 (Version None)
Quarter: 2012Q1

REPORT INFORMATION
  Report Type: 
  Country: None (occurrence: None)
  Receive Date: 20120313
  Receipt Date: 20120224
  Transmission Date: 20120608
  Serious: Yes (Hospitalization, Other)
  Sender: FDA-Public Use
  Company Number: JP-20120006

PATIENT
  Age: 74 Year
  Sex: Male

DRUGS (9)
  1. FAMOSTADGINE-D (FAMOTIDINE) [Concomitant]
  2. EPIRUBICIN HYDROCHLORIDE [Suspect]
     Dosage: 40 MG (20 MG, 1 IN 1 D), INTRA-ARTERIAL
     Route: 013
     Dates: start: 20101116, end: 20101116
  3. BISOPROLOL FUMARATE [Suspect]
     Dosage: 2.5 MG (2.5 MG, 1 IN 1 D), ORAL
     Route: 048
  4. 480 10ML (LIPIODOL ULTRA FLUIDE) (ETHIODIZED OIL) [Suspect]
     Indication: THERAPEUTIC EMBOLISATION
     Dosage: 2 ML (2 ML, 1 IN 1 D), INTRA-ARTERIAL
     Route: 013
     Dates: start: 20101116, end: 20101116
  5. VOLTMIE TABLETS (BIODIASTASE ETC) [Concomitant]
  6. GELATIN (GELATIN) [Suspect]
     Dosage: 1 IN 1 D), INTRA-ARTERIAL
     Route: 013
     Dates: start: 20101116, end: 20101116
  7. CLOSTRIDIUM BUTYRICUM (CLOSTRIDIUM BUTYRICUM) [Suspect]
     Dosage: 3 DOSAGE FORMS (3 DOSAGE FORMS, 1 IN 1 D), ORAL
     Route: 048
  8. KELGE (TERBINAFINE HYDROCHLORIDE) [Concomitant]
  9. TRIAZOLAM [Suspect]
     Dosage: 0.5 MG (0.5 MG, 1 IN 1 D), ORAL
     Route: 048

REACTIONS (8)
  - RENAL FAILURE [None]
  - CLOSTRIDIAL INFECTION [None]
  - CONTINUOUS HAEMODIAFILTRATION [None]
  - OFF LABEL USE [None]
  - HEPATIC FAILURE [None]
  - LIVER ABSCESS [None]
  - GASTRIC ULCER HAEMORRHAGE [None]
  - DISSEMINATED INTRAVASCULAR COAGULATION [None]
